FAERS Safety Report 8469853-4 (Version None)
Quarter: 2012Q2

REPORT INFORMATION
  Report Type: 
  Country: None (occurrence: None)
  Receive Date: 20120627
  Receipt Date: 20120622
  Transmission Date: 20120825
  Serious: Yes (Disabling)
  Sender: FDA-Public Use
  Company Number: PHHY2012GB053694

PATIENT
  Age: 89 Year
  Sex: Female
  Weight: 84 kg

DRUGS (16)
  1. ASPIRIN [Concomitant]
     Dates: start: 20120402, end: 20120430
  2. SIMVASTATIN [Suspect]
  3. BEZAFIBRATE [Concomitant]
     Dates: start: 20120529
  4. BISOPROLOL FUMARATE [Concomitant]
     Dates: start: 20120529
  5. ACETAMINOPHEN AND CODEINE PHOSPHATE [Concomitant]
     Dates: start: 20120529
  6. LEVOTHYROXINE [Concomitant]
     Dates: start: 20120402, end: 20120517
  7. PLAVIX [Concomitant]
     Dates: start: 20120402, end: 20120502
  8. BISOPROLOL FUMARATE [Concomitant]
     Dates: start: 20120402, end: 20120430
  9. VALSARTAN [Concomitant]
     Dates: start: 20120402, end: 20120430
  10. PLAVIX [Concomitant]
     Dates: start: 20120529
  11. VALSARTAN [Concomitant]
     Dates: start: 20120529
  12. ASPIRIN [Concomitant]
     Dates: start: 20120529
  13. ACETAMINOPHEN AND CODEINE PHOSPHATE [Concomitant]
     Dates: start: 20120402, end: 20120430
  14. LANSOPRAZOLE [Concomitant]
     Dates: start: 20120529
  15. LEVOTHYROXINE [Concomitant]
     Dates: start: 20120529
  16. PLAVIX [Concomitant]
     Dates: start: 20120215, end: 20120316

REACTIONS (3)
  - OEDEMA PERIPHERAL [None]
  - MASS [None]
  - PAIN IN EXTREMITY [None]
